FAERS Safety Report 8901260 (Version 2)
Quarter: 2012Q4

REPORT INFORMATION
  Report Type: 
  Country: US (occurrence: US)
  Receive Date: 20121109
  Receipt Date: 20121217
  Transmission Date: 20130627
  Serious: No
  Sender: FDA-Public Use
  Company Number: US-PFIZER INC-2012279265

PATIENT
  Age: 89 Year
  Sex: Female
  Weight: 53.52 kg

DRUGS (5)
  1. ALPRAZOLAM [Suspect]
     Indication: ANXIETY
     Dosage: 0.125 mg, 1x/day
     Route: 048
     Dates: start: 20121023, end: 201210
  2. ALPRAZOLAM [Suspect]
     Dosage: 0.25 mg, 1x/day
     Route: 048
     Dates: start: 201210
  3. DIOVANE [Concomitant]
     Indication: BLOOD PRESSURE HIGH
     Dosage: UNK
  4. NORVASC [Concomitant]
     Indication: BLOOD PRESSURE HIGH
     Dosage: UNK
  5. HYDROCHLOROTHIAZIDE [Concomitant]
     Dosage: UNK

REACTIONS (4)
  - Skin burning sensation [Not Recovered/Not Resolved]
  - Pruritus [Not Recovered/Not Resolved]
  - Erythema [Not Recovered/Not Resolved]
  - Affect lability [Unknown]
